FAERS Safety Report 9528924 (Version 2)
Quarter: 2014Q2

REPORT INFORMATION
  Report Type: Spontaneous
  Country: US (occurrence: None)
  Receive Date: 20130401
  Receipt Date: 20140401
  Transmission Date: 20141212
  Serious: Yes (Other)
  Sender: FDA-Public Use
  Company Number: PHEH2012US024068

PATIENT
  Age: 76 Year
  Sex: Female

DRUGS (11)
  1. EXELON PATCH (RIVASTIGMINE) TRANS-THERAPEUTIC-SYSTEM [Suspect]
     Indication: AMNESIA
     Route: 062
     Dates: start: 20120719
  2. LEXAPRO (ESCITALOPRAM OXALATE) [Concomitant]
  3. FOSAMAX (ALENDRONATE SODIUM) [Concomitant]
  4. ASTEPRO (AZELASTINE HYDROCHLORIDE) NASAL SPRAY [Concomitant]
  5. B COMPLEX (NICOTINAMIDE, PYRIDOXINE HYDROCHLORIDE, RIBOFLAVIN, THIAMINE HYDROCHLORIDE) [Concomitant]
  6. CALCIUM (CALCIUM) [Concomitant]
  7. OMEGA 3 (FISH OIL) [Concomitant]
  8. PANTOTHENIC ACID (PANTOTHENIC ACID) [Concomitant]
  9. PRILOSEC (OMEPRAZOLE) [Concomitant]
  10. VITAMIIN C (ASCORBIC ACID) [Concomitant]
  11. VITAMIN D3 (COLECALCIFEROL) [Concomitant]

REACTIONS (2)
  - Weight decreased [None]
  - Bone density abnormal [None]
